FAERS Safety Report 7973796-X (Version None)
Quarter: 2011Q4

REPORT INFORMATION
  Report Type: 
  Country: None (occurrence: None)
  Receive Date: 20111213
  Receipt Date: 20111206
  Transmission Date: 20120403
  Serious: Yes (Hospitalization)
  Sender: FDA-Public Use
  Company Number: PHHY2011AR106671

PATIENT
  Sex: Male

DRUGS (1)
  1. TEGRETOL [Suspect]
     Indication: TRIGEMINAL NEURALGIA
     Dosage: 200 MG, DAILY
     Dates: start: 20090101

REACTIONS (7)
  - DEHYDRATION [None]
  - LOSS OF CONSCIOUSNESS [None]
  - HEAD INJURY [None]
  - FALL [None]
  - DEMENTIA ALZHEIMER'S TYPE [None]
  - BLOOD PRESSURE DECREASED [None]
  - TRIGEMINAL NEURALGIA [None]
